FAERS Safety Report 15414998 (Version 1)
Quarter: 2018Q3

REPORT INFORMATION
  Report Type: Spontaneous
  Country: NO (occurrence: NO)
  Receive Date: 20180921
  Receipt Date: 20180921
  Transmission Date: 20181010
  Serious: Yes (Death, Hospitalization, Other)
  Sender: FDA-Public Use
  Company Number: PHHY2018NO098799

PATIENT
  Age: 71 Year
  Sex: Female

DRUGS (6)
  1. LETROZOLE. [Suspect]
     Active Substance: LETROZOLE
     Indication: BREAST CANCER METASTATIC
     Dosage: UNK
     Route: 065
  2. FULVESTRANT. [Suspect]
     Active Substance: FULVESTRANT
     Indication: BREAST CANCER METASTATIC
     Dosage: 250 MG, UNK
     Route: 065
  3. DENOSUMAB [Suspect]
     Active Substance: DENOSUMAB
     Indication: BREAST CANCER METASTATIC
     Dosage: UNK
     Route: 065
  4. KISQALI [Suspect]
     Active Substance: RIBOCICLIB
     Indication: BREAST CANCER METASTATIC
     Dosage: UNK
     Route: 065
  5. WARFARIN [Concomitant]
     Active Substance: WARFARIN
     Indication: PROPHYLAXIS
     Dosage: UNK
     Route: 065
  6. FULVESTRANT. [Suspect]
     Active Substance: FULVESTRANT
     Dosage: 500 MG, UNK
     Route: 065
     Dates: start: 201712

REACTIONS (17)
  - Death [Fatal]
  - Alanine aminotransferase increased [Unknown]
  - Blood lactate dehydrogenase increased [Unknown]
  - Breast cancer metastatic [Unknown]
  - Treatment noncompliance [Unknown]
  - Cognitive disorder [Unknown]
  - Anaemia [Unknown]
  - General physical health deterioration [Unknown]
  - Hepatotoxicity [Unknown]
  - Gamma-glutamyltransferase increased [Unknown]
  - Upper gastrointestinal haemorrhage [Unknown]
  - Deep vein thrombosis [Unknown]
  - Blood bilirubin increased [Unknown]
  - Influenza [Unknown]
  - Diarrhoea [Unknown]
  - Acute kidney injury [Unknown]
  - Malignant neoplasm progression [Unknown]

NARRATIVE: CASE EVENT DATE: 201711
